FAERS Safety Report 15114376 (Version 2)
Quarter: 2018Q3

REPORT INFORMATION
  Report Type: Spontaneous
  Country: GB (occurrence: GB)
  Receive Date: 20180706
  Receipt Date: 20180711
  Transmission Date: 20181010
  Serious: Yes (Other)
  Sender: FDA-Public Use
  Company Number: PHHY2018GB037100

PATIENT
  Age: 47 Year
  Sex: Female

DRUGS (3)
  1. METHOTREXATE. [Suspect]
     Active Substance: METHOTREXATE
     Indication: PSORIASIS
     Dosage: UNK (BETWEEN MARCH, 1979, AND NOVEMBER, 1980)
     Route: 065
  2. RAZOXANE [Suspect]
     Active Substance: DEXRAZOXANE
     Indication: PSORIASIS
     Dosage: UNK, (625?1125 MG/WEEK)
     Route: 065
  3. HYDROXYUREA. [Concomitant]
     Active Substance: HYDROXYUREA
     Indication: PSORIASIS
     Dosage: UNK, (BETWEEN MARCH, 1979, AND NOVEMBER,1980)
     Route: 065

REACTIONS (1)
  - Acute promyelocytic leukaemia [Unknown]
